FAERS Safety Report 15183648 (Version 7)
Quarter: 2018Q4

REPORT INFORMATION
  Report Type: Spontaneous
  Country: CA (occurrence: CA)
  Receive Date: 20180723
  Receipt Date: 20181123
  Transmission Date: 20190204
  Serious: Yes (Hospitalization, Other)
  Sender: FDA-Public Use
  Company Number: CA-PFIZER INC-2018288711

PATIENT
  Age: 71 Year
  Sex: Female
  Weight: 49.4 kg

DRUGS (25)
  1. HYDROMORPHONE HYDROCHLORIDE. [Suspect]
     Active Substance: HYDROMORPHONE HYDROCHLORIDE
     Dosage: UNK
  2. CEFTRIAXONE SODIUM. [Suspect]
     Active Substance: CEFTRIAXONE SODIUM
     Dosage: UNK
  3. LYRICA [Concomitant]
     Active Substance: PREGABALIN
     Dosage: 75 MG, 2X/DAY
     Route: 048
     Dates: start: 2018
  4. BUDESONIDE. [Concomitant]
     Active Substance: BUDESONIDE
     Dosage: 6 MG, DAILY
     Route: 048
     Dates: end: 20180823
  5. CALCIUM CARBONATE. [Concomitant]
     Active Substance: CALCIUM CARBONATE
     Dosage: 1250 MG, 2X/DAY
     Route: 048
     Dates: start: 2018
  6. FOLIC ACID. [Concomitant]
     Active Substance: FOLIC ACID
     Dosage: 2 MG MONDAY, TUESDAY, WEDNESDAY, THURSDAY, SATURDAY AND SUNDAY
     Route: 048
     Dates: start: 2018
  7. INFLECTRA [Suspect]
     Active Substance: INFLIXIMAB-DYYB
     Dosage: 10 MG/KG, UNK (RELOAD ON WEEK 0, WEEK 2, 6 THEN ECERY 8 WEEKS)
     Route: 042
     Dates: start: 20180827
  8. MELATONIN [Concomitant]
     Active Substance: MELATONIN
     Dosage: 5 MG, UNK
     Route: 060
     Dates: start: 2018
  9. METRONIDAZOLE. [Suspect]
     Active Substance: METRONIDAZOLE
     Dosage: UNK
  10. PANTOPRAZOLE [Concomitant]
     Active Substance: PANTOPRAZOLE
     Dosage: 40 MG, DAILY
     Route: 048
     Dates: start: 2018
  11. INFLECTRA [Suspect]
     Active Substance: INFLIXIMAB-DYYB
     Dosage: 300 MG, UNK (EVERY 2, 6 WEEKS, THEN EVERY 8 WEEKS)
     Route: 042
     Dates: start: 20180727
  12. INFLECTRA [Suspect]
     Active Substance: INFLIXIMAB-DYYB
     Dosage: 10 MG/KG, UNK (RELOAD ON WEEK 0, WEEK 2, 6, THEN EVERY 8 WEEKS )
     Route: 042
     Dates: start: 20180714
  13. LYRICA [Concomitant]
     Active Substance: PREGABALIN
     Dosage: 75 MG, 1X/DAY
     Route: 048
  14. VITAMIN D [Concomitant]
     Active Substance: CHOLECALCIFEROL
     Dosage: 1000 IU, DAILY
     Route: 048
     Dates: start: 2018
  15. LASIX [Concomitant]
     Active Substance: FUROSEMIDE
     Dosage: 40 MG, DAILY
     Route: 048
     Dates: start: 2018
  16. INFLECTRA [Suspect]
     Active Substance: INFLIXIMAB-DYYB
     Dosage: 10 MG/KG, UNK (RELOAD ON WEEK 0, WEEK 2, 6 THEN EVERY 8 WEEKS)
     Route: 042
     Dates: start: 20180827
  17. POLYETHYLENE GLYCOL [Concomitant]
     Active Substance: POLYETHYLENE GLYCOLS
     Dosage: 17 G, 2X/DAY
     Route: 048
     Dates: start: 2018
  18. M-ESLON [Concomitant]
     Active Substance: MORPHINE SULFATE
     Dosage: 30 MG, 2X/DAY
     Route: 048
     Dates: start: 2018
  19. INFLECTRA [Suspect]
     Active Substance: INFLIXIMAB-DYYB
     Indication: CROHN^S DISEASE
     Dosage: 300 MG, UNK (EVERY 2, 6 WEEKS, THEN EVERY 8 WEEKS)
     Route: 042
     Dates: start: 20180515, end: 20180527
  20. INFLECTRA [Suspect]
     Active Substance: INFLIXIMAB-DYYB
     Dosage: 500 MG, MONTHLY
     Route: 042
  21. METHOTREXATE SODIUM. [Suspect]
     Active Substance: METHOTREXATE SODIUM
     Dosage: 15 MG, WEEKLY (EVERY FRIDAY)
     Route: 058
  22. ASACOL [Concomitant]
     Active Substance: MESALAMINE
     Dosage: 4.8 G, DAILY (IN 3 DIVIDED DOSES)
  23. CITALOPRAM [Concomitant]
     Active Substance: CITALOPRAM HYDROBROMIDE
     Dosage: REDUCED TO 20 MG DAILY
     Route: 048
     Dates: start: 2018
  24. BUDESONIDE. [Concomitant]
     Active Substance: BUDESONIDE
     Dosage: 30 MG, DAILY FOR 2 WEEKS
     Route: 048
     Dates: end: 20180906
  25. SLOW-K [Concomitant]
     Active Substance: POTASSIUM CHLORIDE
     Dosage: 2000 MG, DAILY
     Route: 048
     Dates: start: 2018

REACTIONS (7)
  - Malaise [Unknown]
  - Cognitive disorder [Unknown]
  - Obstruction [Unknown]
  - Suicide attempt [Unknown]
  - Pelvic fracture [Unknown]
  - Mental disorder [Unknown]
  - Pain [Unknown]

NARRATIVE: CASE EVENT DATE: 2018
